FAERS Safety Report 4788614-0 (Version None)
Quarter: 2005Q4

REPORT INFORMATION
  Report Type: 
  Country: None (occurrence: None)
  Receive Date: 20051005
  Receipt Date: 20050921
  Transmission Date: 20060501
  Serious: Yes (Other)
  Sender: FDA-Public Use
  Company Number: CA-GLAXOSMITHKLINE-A0575514A

PATIENT
  Age: 57 Year
  Sex: Female
  Weight: 56.8 kg

DRUGS (2)
  1. VALTREX [Suspect]
     Indication: HERPES ZOSTER
     Dosage: 500MG TWICE PER DAY
     Route: 048
     Dates: start: 20050915
  2. PAIN MEDICATION [Concomitant]

REACTIONS (1)
  - HAEMATEMESIS [None]
